FAERS Safety Report 5191306-X (Version None)
Quarter: 2006Q4

REPORT INFORMATION
  Report Type: 
  Country: None (occurrence: None)
  Receive Date: 20061219
  Receipt Date: 20061208
  Transmission Date: 20070319
  Serious: Yes (Hospitalization)
  Sender: FDA-Public Use
  Company Number: 2006PV026606

PATIENT
  Age: 60 Year
  Sex: Female
  Weight: 124.7392 kg

DRUGS (3)
  1. BYETTA [Suspect]
     Indication: DIABETES MELLITUS NON-INSULIN-DEPENDENT
     Dosage: 10 MCG, BID; SC, 5 MCG, BID; SC
     Route: 058
     Dates: start: 20060101, end: 20060101
  2. GLUCOPHAGE [Concomitant]
  3. GLIPIZIDE [Concomitant]

REACTIONS (3)
  - GOITRE [None]
  - SINUSITIS [None]
  - THYROIDITIS [None]
